FAERS Safety Report 6489975-7 (Version None)
Quarter: 2009Q4

REPORT INFORMATION
  Report Type: 
  Country: None (occurrence: None)
  Receive Date: 20091211
  Receipt Date: 20091204
  Transmission Date: 20100525
  Serious: Yes (Other)
  Sender: FDA-Public Use
  Company Number: PHHY2009CZ53725

PATIENT
  Age: 71 Year
  Sex: Female

DRUGS (2)
  1. EXJADE [Suspect]
     Dosage: 20 MG/KG/DAY
     Dates: start: 20090520, end: 20090901
  2. EXJADE [Suspect]
     Dosage: 10 MG/KG/DAY
     Dates: start: 20091101

REACTIONS (1)
  - PNEUMONIA [None]
